FAERS Safety Report 7166186-3 (Version None)
Quarter: 2010Q4

REPORT INFORMATION
  Report Type: 
  Country: None (occurrence: None)
  Receive Date: 20101203
  Receipt Date: 20101123
  Transmission Date: 20110411
  Serious: Yes (Other)
  Sender: FDA-Public Use
  Company Number: 2010SP003228

PATIENT
  Age: 39 Year
  Sex: Female
  Weight: 86.4 kg

DRUGS (8)
  1. LUNESTA [Suspect]
     Indication: INSOMNIA
     Dosage: 2 MG;PRN; ORAL
     Route: 048
     Dates: end: 20100501
  2. LUNESTA [Suspect]
     Indication: INSOMNIA
     Dosage: 2 MG;PRN; ORAL
     Route: 048
     Dates: start: 20100801
  3. VALTREX [Suspect]
     Indication: ORAL HERPES
     Dates: start: 20100501, end: 20100501
  4. TORADOL [Suspect]
     Dates: start: 20100512, end: 20100512
  5. VALIUM [Suspect]
     Indication: PREMEDICATION
     Dates: start: 20100521, end: 20100521
  6. PERCOGESIC [Concomitant]
  7. TYLENOL (CAPLET) [Concomitant]
  8. FLU /01389801/ [Concomitant]

REACTIONS (17)
  - ASTHENIA [None]
  - CEREBRAL MICROANGIOPATHY [None]
  - DYSARTHRIA [None]
  - DYSKINESIA [None]
  - FEELING ABNORMAL [None]
  - HYPOAESTHESIA [None]
  - ISCHAEMIA [None]
  - MENTAL IMPAIRMENT [None]
  - MUSCLE SPASMS [None]
  - MUSCLE TIGHTNESS [None]
  - MUSCLE TWITCHING [None]
  - NECK INJURY [None]
  - POST CONCUSSION SYNDROME [None]
  - SENSORY DISTURBANCE [None]
  - SPONDYLITIS [None]
  - STARING [None]
  - TRAUMATIC BRAIN INJURY [None]
